FAERS Safety Report 7707627-X (Version None)
Quarter: 2011Q3

REPORT INFORMATION
  Report Type: 
  Country: None (occurrence: None)
  Receive Date: 20110824
  Receipt Date: 20110812
  Transmission Date: 20111222
  Serious: Yes (Other)
  Sender: FDA-Public Use
  Company Number: US-ELI_LILLY_AND_COMPANY-US201108004925

PATIENT
  Sex: Male

DRUGS (3)
  1. LANTUS [Concomitant]
     Dosage: UNK
  2. HUMALOG [Suspect]
     Dosage: UNK UNK, TID
  3. HUMALOG [Suspect]
     Indication: DIABETES MELLITUS
     Dosage: 10 U, PRN

REACTIONS (8)
  - RENAL FAILURE [None]
  - PARALYSIS [None]
  - DEMENTIA [None]
  - MYOCARDIAL INFARCTION [None]
  - MALIGNANT MELANOMA [None]
  - NON-HODGKIN'S LYMPHOMA [None]
  - SKIN CANCER [None]
  - CEREBROVASCULAR ACCIDENT [None]
